FAERS Safety Report 4818036-5 (Version None)
Quarter: 2005Q4

REPORT INFORMATION
  Report Type: 
  Country: None (occurrence: None)
  Receive Date: 20051102
  Receipt Date: 20050915
  Transmission Date: 20060501
  Serious: Yes (Other)
  Sender: FDA-Public Use
  Company Number: US-AMGEN-US150406

PATIENT
  Sex: Female
  Weight: 113.5 kg

DRUGS (7)
  1. ENBREL [Suspect]
     Indication: PSORIASIS
     Route: 058
     Dates: start: 20050427, end: 20050909
  2. LEXAPRO [Concomitant]
     Route: 048
  3. GLIPIZIDE [Concomitant]
     Route: 048
  4. ZOCOR [Concomitant]
     Route: 065
  5. LISINOPRIL [Concomitant]
     Route: 048
  6. FUROSEMIDE [Concomitant]
     Route: 048
  7. SPIRIVA [Concomitant]
     Route: 055

REACTIONS (10)
  - CONDITION AGGRAVATED [None]
  - COUGH [None]
  - HAEMOPTYSIS [None]
  - LUNG ADENOCARCINOMA STAGE IV [None]
  - METASTASIS [None]
  - NON-SMALL CELL LUNG CANCER [None]
  - PAIN IN EXTREMITY [None]
  - PELVIC PAIN [None]
  - PSORIASIS [None]
  - RED BLOOD CELL SEDIMENTATION RATE INCREASED [None]
